FAERS Safety Report 20143634 (Version 2)
Quarter: 2022Q1

REPORT INFORMATION
  Report Type: Spontaneous
  Country: GB (occurrence: GB)
  Receive Date: 20211203
  Receipt Date: 20220106
  Transmission Date: 20220423
  Serious: Yes (Other)
  Sender: FDA-Public Use
  Company Number: GB-009507513-2109GBR003530

PATIENT
  Age: 41 Year
  Sex: Male

DRUGS (8)
  1. TENOFOVIR DISOPROXIL [Suspect]
     Active Substance: TENOFOVIR DISOPROXIL
     Indication: Product used for unknown indication
     Dosage: UNK
     Route: 065
  2. LITHIUM [Suspect]
     Active Substance: LITHIUM
     Indication: Personality disorder
     Dosage: UNK
     Route: 048
  3. RALTEGRAVIR POTASSIUM [Suspect]
     Active Substance: RALTEGRAVIR POTASSIUM
     Indication: HIV infection
     Dosage: 400 MILLIGRAM, BD
     Route: 048
     Dates: start: 201708, end: 201807
  4. RALTEGRAVIR POTASSIUM [Suspect]
     Active Substance: RALTEGRAVIR POTASSIUM
     Indication: HIV infection
     Dosage: 1200 MILLIGRAM, OD
     Route: 048
     Dates: start: 201807, end: 202109
  5. FEXOFENADINE [Concomitant]
     Active Substance: FEXOFENADINE HYDROCHLORIDE
     Indication: Hypersensitivity
     Dosage: DOSE 180MG - TOTAL DAILY DOSAGE 360MG
     Route: 048
  6. FEXOFENADINE [Concomitant]
     Active Substance: FEXOFENADINE HYDROCHLORIDE
     Dosage: DOSE 180MG - TOTAL DAILY DOSAGE 360MG
     Route: 048
  7. TRUVADA [Concomitant]
     Active Substance: EMTRICITABINE\TENOFOVIR DISOPROXIL FUMARATE
     Indication: HIV infection
     Dosage: UNK UNK, ONCE A DAY (UNK, OD)
     Route: 048
     Dates: start: 201808
  8. TRUVADA [Concomitant]
     Active Substance: EMTRICITABINE\TENOFOVIR DISOPROXIL FUMARATE
     Indication: HIV infection
     Dosage: UNK, OD
     Route: 048
     Dates: start: 201808, end: 202109

REACTIONS (8)
  - Renal impairment [Unknown]
  - Illness [Not Recovered/Not Resolved]
  - Mental disorder [Not Recovered/Not Resolved]
  - Weight increased [Unknown]
  - Weight decreased [Unknown]
  - Diarrhoea [Not Recovered/Not Resolved]
  - Drug intolerance [Unknown]
  - Asthma [Unknown]
